FAERS Safety Report 6987148-2 (Version None)
Quarter: 2010Q3

REPORT INFORMATION
  Report Type: 
  Country: None (occurrence: None)
  Receive Date: 20100916
  Receipt Date: 20100915
  Transmission Date: 20110219
  Serious: Yes (Other)
  Sender: FDA-Public Use
  Company Number: AU-PFIZER INC-2010107385

PATIENT
  Age: 46 Year
  Sex: Male

DRUGS (2)
  1. ZOLOFT [Suspect]
     Indication: MAJOR DEPRESSION
     Dosage: 300 MG, 1X/DAY
  2. VERAPAMIL [Interacting]
     Dosage: 120 MG, UNK

REACTIONS (5)
  - BLINDNESS [None]
  - BLOOD PRESSURE INCREASED [None]
  - DRUG INTERACTION [None]
  - MEDICATION ERROR [None]
  - MIGRAINE [None]
